FAERS Safety Report 6045314-7 (Version None)
Quarter: 2009Q1

REPORT INFORMATION
  Report Type: 
  Country: None (occurrence: None)
  Receive Date: 20090121
  Receipt Date: 20081219
  Transmission Date: 20090719
  Serious: No
  Sender: FDA-Public Use
  Company Number: US-BAYER-200841163NA

PATIENT
  Age: 23 Year
  Sex: Female
  Weight: 64 kg

DRUGS (1)
  1. MIRENA [Suspect]
     Indication: CONTRACEPTION
     Route: 015
     Dates: start: 20040104, end: 20081219

REACTIONS (5)
  - AMENORRHOEA [None]
  - COITAL BLEEDING [None]
  - IUCD COMPLICATION [None]
  - METRORRHAGIA [None]
  - PANIC ATTACK [None]
